FAERS Safety Report 8357584-0 (Version None)
Quarter: 2012Q2

REPORT INFORMATION
  Report Type: 
  Country: None (occurrence: None)
  Receive Date: 20120514
  Receipt Date: 20120505
  Transmission Date: 20120825
  Serious: Yes (Hospitalization, Other)
  Sender: FDA-Public Use
  Company Number: BR-ABBOTT-12P-020-0929636-00

PATIENT
  Age: 66 Year
  Sex: Female
  Weight: 78 kg

DRUGS (1)
  1. HUMIRA [Suspect]
     Indication: RHEUMATOID ARTHRITIS
     Dates: start: 20040101, end: 20120423

REACTIONS (8)
  - VIRAL INFECTION [None]
  - BREAST CANCER [None]
  - BEDRIDDEN [None]
  - ORAL CANDIDIASIS [None]
  - DYSPNOEA [None]
  - HYPOPHAGIA [None]
  - PULMONARY OEDEMA [None]
  - PLEURAL EFFUSION [None]
